FAERS Safety Report 10611630 (Version 6)
Quarter: 2015Q1

REPORT INFORMATION
  Report Type: Spontaneous
  Country: US (occurrence: US)
  Receive Date: 20141126
  Receipt Date: 20150121
  Transmission Date: 20150720
  Serious: Yes (Death, Hospitalization)
  Sender: FDA-Public Use
  Company Number: US-UNITED THERAPEUTICS-UNT-2014-010804

PATIENT
  Sex: Male
  Weight: 71.2 kg

DRUGS (7)
  1. ORENITRAM [Suspect]
     Active Substance: TREPROSTINIL
     Dosage: 2.5 MG, BID
     Route: 048
     Dates: start: 20141022
  2. TYVASO [Suspect]
     Active Substance: TREPROSTINIL
     Indication: PULMONARY HYPERTENSION
     Dosage: 18-54 MICROGRAMS, QID
     Dates: start: 20140804, end: 20141002
  3. ORENITRAM [Suspect]
     Active Substance: TREPROSTINIL
     Dosage: 2.5 MG, BID
     Route: 048
     Dates: start: 20141002
  4. ORENITRAM [Suspect]
     Active Substance: TREPROSTINIL
     Dosage: 2.25 MG, BID
     Route: 048
     Dates: start: 20141022
  5. ORENITRAM [Suspect]
     Active Substance: TREPROSTINIL
     Indication: PULMONARY HYPERTENSION
     Dosage: 1.5 MG, BID
     Route: 048
     Dates: start: 20141002
  6. ORENITRAM [Suspect]
     Active Substance: TREPROSTINIL
     Dosage: 2.5 MG, BID
     Route: 048
     Dates: start: 20141022
  7. REVATIO [Concomitant]
     Active Substance: SILDENAFIL CITRATE
     Indication: PRODUCT USED FOR UNKNOWN INDICATION

REACTIONS (12)
  - Pleural effusion [Unknown]
  - Abdominal distension [Unknown]
  - Constipation [Unknown]
  - Oedema [Unknown]
  - Death [Fatal]
  - Back pain [Unknown]
  - Headache [Unknown]
  - Malaise [Unknown]
  - Localised oedema [Unknown]
  - Pulmonary arterial hypertension [Unknown]
  - Cardiac failure congestive [Unknown]
  - Sinusitis [Unknown]

NARRATIVE: CASE EVENT DATE: 2014
